FAERS Safety Report 4674902-5 (Version None)
Quarter: 2005Q2

REPORT INFORMATION
  Report Type: 
  Country: None (occurrence: None)
  Receive Date: 20050526
  Receipt Date: 20050516
  Transmission Date: 20051028
  Serious: Yes (Other)
  Sender: FDA-Public Use
  Company Number: GB-ABBOTT-05P-167-0300670-00

PATIENT
  Age: 9 Year
  Sex: Female

DRUGS (3)
  1. ERYTHROMYCIN BASE [Suspect]
     Indication: EAR INFECTION
  2. VALPROATE SODIUM [Suspect]
     Indication: DRUG USE FOR UNKNOWN INDICATION
     Route: 048
  3. TOPIRAMATE [Suspect]
     Indication: DRUG USE FOR UNKNOWN INDICATION
     Dosage: 125MG+150MG
     Route: 048

REACTIONS (2)
  - GAIT DISTURBANCE [None]
  - SOMNOLENCE [None]
